FAERS Safety Report 9216256 (Version 2)
Quarter: 2013Q4

REPORT INFORMATION
  Report Type: Report from Study
  Country: AU (occurrence: AU)
  Receive Date: 20130408
  Receipt Date: 20131226
  Transmission Date: 20140711
  Serious: Yes (Death, Other)
  Sender: FDA-Public Use
  Company Number: AU-MPIJNJ-2013-02412

PATIENT
  Sex: 0

DRUGS (1)
  1. VELCADE [Suspect]
     Indication: PRIMARY AMYLOIDOSIS
     Route: 042

REACTIONS (2)
  - Myocardial infarction [Fatal]
  - Off label use [Unknown]
